FAERS Safety Report 18891891 (Version 2)
Quarter: 2021Q4

REPORT INFORMATION
  Report Type: Spontaneous
  Country: FR (occurrence: FR)
  Receive Date: 20210215
  Receipt Date: 20211103
  Transmission Date: 20220303
  Serious: Yes (Hospitalization, Disabling, Other)
  Sender: FDA-Public Use
  Company Number: FR-NOVARTISPH-NVSC2021FR027095

PATIENT
  Sex: Male
  Weight: 110 kg

DRUGS (24)
  1. OFLOXACIN [Suspect]
     Active Substance: OFLOXACIN
     Indication: Urinary tract infection
     Dosage: 400 MG, QD
     Route: 048
     Dates: start: 20110115, end: 20110315
  2. OFLOXACIN [Suspect]
     Active Substance: OFLOXACIN
     Indication: Prostatitis
     Dosage: UNK UNK, QD
     Route: 048
     Dates: start: 1998
  3. OFLOXACIN [Suspect]
     Active Substance: OFLOXACIN
     Indication: Cystitis
     Dosage: UNK
     Route: 048
     Dates: start: 2002
  4. OFLOXACIN [Suspect]
     Active Substance: OFLOXACIN
     Indication: Ligament operation
     Dosage: 2 DF, QD
     Route: 048
     Dates: start: 20110114, end: 20110121
  5. OFLOXACIN [Suspect]
     Active Substance: OFLOXACIN
     Indication: Otitis externa
     Dosage: UNK
     Route: 001
     Dates: start: 200408
  6. NORFLOXACIN [Suspect]
     Active Substance: NORFLOXACIN
     Indication: Prostatitis
     Dosage: 800 MG, QD
     Route: 048
     Dates: start: 20110318, end: 20110501
  7. ESIDREX [Concomitant]
     Active Substance: HYDROCHLOROTHIAZIDE
     Indication: Product used for unknown indication
     Dosage: UNK
     Route: 065
  8. PROPRANOLOL HYDROCHLORIDE [Concomitant]
     Active Substance: PROPRANOLOL HYDROCHLORIDE
     Indication: Product used for unknown indication
     Dosage: 160 MG, QD
     Route: 065
  9. BACTRIM [Concomitant]
     Active Substance: SULFAMETHOXAZOLE\TRIMETHOPRIM
     Indication: Product used for unknown indication
     Dosage: UNK
     Route: 065
  10. CELESTENE [Concomitant]
     Indication: Product used for unknown indication
     Dosage: UNK
     Route: 065
  11. TRIMEBUTINE [Concomitant]
     Active Substance: TRIMEBUTINE
     Indication: Product used for unknown indication
     Dosage: UNK
     Route: 065
  12. ASPEGIC [Concomitant]
     Indication: Product used for unknown indication
     Dosage: UNK
     Route: 065
  13. AUGMENTIN [Concomitant]
     Active Substance: AMOXICILLIN\CLAVULANATE POTASSIUM
     Indication: Product used for unknown indication
     Dosage: UNK
     Route: 065
  14. METFORMIN [Concomitant]
     Active Substance: METFORMIN HYDROCHLORIDE
     Indication: Diabetes mellitus
     Dosage: 500 MG
     Route: 065
     Dates: start: 2019
  15. LOXEN [Concomitant]
     Indication: Product used for unknown indication
     Dosage: UNK
     Route: 065
  16. LOSARTAN [Concomitant]
     Active Substance: LOSARTAN
     Indication: Product used for unknown indication
     Dosage: UNK
     Route: 065
  17. FLAGYL [Concomitant]
     Active Substance: METRONIDAZOLE\METRONIDAZOLE HYDROCHLORIDE
     Indication: Product used for unknown indication
     Dosage: UNK
     Route: 065
  18. HERBALS\SAW PALMETTO [Concomitant]
     Active Substance: HERBALS\SAW PALMETTO
     Indication: Product used for unknown indication
     Dosage: UNK
     Route: 065
  19. CORTICOSTEROID NOS [Concomitant]
     Active Substance: CORTICOSTEROID NOS
     Indication: Otitis externa
     Dosage: UNK
     Route: 065
     Dates: start: 200408
  20. ANTIPYRINE [Concomitant]
     Active Substance: ANTIPYRINE
     Indication: Product used for unknown indication
     Dosage: UNK
     Route: 065
  21. ACETAMINOPHEN [Concomitant]
     Active Substance: ACETAMINOPHEN
     Indication: Product used for unknown indication
     Dosage: UNK
     Route: 065
  22. KETOPROFEN [Concomitant]
     Active Substance: KETOPROFEN
     Indication: Product used for unknown indication
     Dosage: UNK
     Route: 065
  23. TRANDOLAPRIL [Concomitant]
     Active Substance: TRANDOLAPRIL
     Indication: Product used for unknown indication
     Dosage: UNK
     Route: 065
  24. ALDACTONE [Suspect]
     Active Substance: SPIRONOLACTONE
     Indication: Product used for unknown indication
     Dosage: 4 MG
     Route: 065

REACTIONS (74)
  - Hypertension [Not Recovered/Not Resolved]
  - Migraine [Not Recovered/Not Resolved]
  - Tension [Unknown]
  - Ear infection [Unknown]
  - Stress [Unknown]
  - Disability [Not Recovered/Not Resolved]
  - Congestive cardiomyopathy [Unknown]
  - Acromegaly [Unknown]
  - Arnold-Chiari malformation [Unknown]
  - Portal hypertension [Unknown]
  - Hepatic fibrosis [Unknown]
  - Varicose vein [Unknown]
  - Intracranial pressure increased [Unknown]
  - Pancreatitis [Not Recovered/Not Resolved]
  - Neuropathy peripheral [Not Recovered/Not Resolved]
  - Muscle rupture [Recovered/Resolved with Sequelae]
  - Pancreatitis acute [Unknown]
  - Prostatism [Unknown]
  - Anal incontinence [Unknown]
  - Skin disorder [Unknown]
  - Nocturia [Unknown]
  - Nasal turbinate hypertrophy [Unknown]
  - Small fibre neuropathy [Unknown]
  - Urinary bladder polyp [Unknown]
  - Rhinitis [Unknown]
  - Urinary incontinence [Unknown]
  - Hypermetropia [Unknown]
  - Varices oesophageal [Unknown]
  - Road traffic accident [Unknown]
  - Myopia [Unknown]
  - Sleep apnoea syndrome [Unknown]
  - Prostatic adenoma [Unknown]
  - Extrasystoles [Unknown]
  - Nodule [Unknown]
  - Benign prostatic hyperplasia [Unknown]
  - Tendon disorder [Not Recovered/Not Resolved]
  - Incontinence [Unknown]
  - Vascular pain [Not Recovered/Not Resolved]
  - Tendon pain [Not Recovered/Not Resolved]
  - Hypoaesthesia [Unknown]
  - Hypoaesthesia [Unknown]
  - Haematoma [Not Recovered/Not Resolved]
  - Metaplasia [Unknown]
  - Sperm analysis abnormal [Unknown]
  - Blood pressure increased [Not Recovered/Not Resolved]
  - Infection [Unknown]
  - Neuralgia [Unknown]
  - Toxicity to various agents [Not Recovered/Not Resolved]
  - Chondropathy [Not Recovered/Not Resolved]
  - Prostatitis [Unknown]
  - Haematuria [Unknown]
  - Haematuria [Unknown]
  - Tendon rupture [Unknown]
  - Tendonitis [Unknown]
  - Rash papular [Unknown]
  - Fatigue [Unknown]
  - Photosensitivity reaction [Unknown]
  - Paraesthesia [Unknown]
  - Paraesthesia [Not Recovered/Not Resolved]
  - Pain in extremity [Not Recovered/Not Resolved]
  - Pain in extremity [Not Recovered/Not Resolved]
  - Tinnitus [Not Recovered/Not Resolved]
  - Tinnitus [Unknown]
  - Tinnitus [Unknown]
  - Myalgia [Not Recovered/Not Resolved]
  - Myalgia [Unknown]
  - Arthralgia [Unknown]
  - Headache [Recovered/Resolved]
  - Headache [Recovering/Resolving]
  - Superinfection [Unknown]
  - Dysgraphia [Unknown]
  - Spermatozoa abnormal [Unknown]
  - Synovial cyst [Unknown]
  - Dizziness [Unknown]

NARRATIVE: CASE EVENT DATE: 19980101
